FAERS Safety Report 4395517-2 (Version None)
Quarter: 2004Q3

REPORT INFORMATION
  Report Type: 
  Country: None (occurrence: None)
  Receive Date: 20040712
  Receipt Date: 20040712
  Transmission Date: 20050211
  Serious: Yes (Death, Life-Threatening, Hospitalization)
  Sender: FDA-Public Use
  Company Number: None

PATIENT
  Age: 58 Year
  Sex: Male
  Weight: 89.8122 kg

DRUGS (7)
  1. RIBASPHERE [Suspect]
     Indication: HEPATITIS C
     Dosage: 600 MG P.O. BID
     Route: 048
     Dates: start: 20040227, end: 20040628
  2. PEGASYS [Suspect]
     Indication: HEPATITIS C
     Dosage: 180 MCG WEEKLY
     Dates: start: 20040227, end: 20040628
  3. FELODIPINE [Concomitant]
  4. MULTI-VITAMIN [Concomitant]
  5. MILK THISTLE [Concomitant]
  6. THERAFLU [Concomitant]
  7. SIMVASTATIN [Concomitant]

REACTIONS (4)
  - ANAEMIA [None]
  - CARDIO-RESPIRATORY ARREST [None]
  - FEELING ABNORMAL [None]
  - MYOCARDIAL INFARCTION [None]
